FAERS Safety Report 9840196 (Version 1)
Quarter: 2014Q1

REPORT INFORMATION
  Report Type: Spontaneous
  Country: TR (occurrence: TR)
  Receive Date: 20140124
  Receipt Date: 20140124
  Transmission Date: 20141002
  Serious: Yes (Other)
  Sender: FDA-Public Use
  Company Number: TR-ACCORD-021391

PATIENT
  Sex: 0

DRUGS (5)
  1. CIPROFLOXACIN [Concomitant]
     Indication: ANTIBIOTIC PROPHYLAXIS
     Route: 048
  2. CARMUSTINE [Suspect]
     Indication: LYMPHOMA
     Dosage: TOTAL DOSE:300 MG/M2
     Route: 042
  3. CYTARABINE/CYTARABINE HYDROCHLORIDE/CYTARABINE OCFOSFATE [Suspect]
     Indication: LYMPHOMA
     Route: 042
  4. ETOPOSIDE [Suspect]
     Indication: LYMPHOMA
     Route: 042
  5. MELPHALAN [Suspect]
     Indication: LYMPHOMA
     Dosage: TOTAL DOSE:140 MG/M2
     Route: 042

REACTIONS (1)
  - Acute myeloid leukaemia [Unknown]
